FAERS Safety Report 23501989 (Version 1)
Quarter: 2024Q1

REPORT INFORMATION
  Report Type: Spontaneous
  Country: US (occurrence: None)
  Receive Date: 20240206
  Receipt Date: 20240206
  Transmission Date: 20240409
  Serious: Yes (Death)
  Sender: FDA-Public Use
  Company Number: None

PATIENT
  Age: 52 Year
  Sex: Male
  Weight: 85.5 kg

DRUGS (5)
  1. PAROXETINE HYDROCHLORIDE [Suspect]
     Active Substance: PAROXETINE HYDROCHLORIDE\PAROXETINE HYDROCHLORIDE ANHYDROUS
     Indication: Depression
     Dosage: 1 TABLET ONCE A DAY TAKEN BY MOUTH?
     Route: 048
  2. BUPROPION HYDROCHLORIDE [Suspect]
     Active Substance: BUPROPION HYDROCHLORIDE
     Indication: Depression
     Dosage: 2 TABLETS IN THE MORNING TAKEN BY MOUTH
     Route: 048
  3. Hydroxyzine Pam (Vistaril) [Concomitant]
  4. ATIVAN [Concomitant]
     Active Substance: LORAZEPAM
  5. Trazodone (Desyrel) [Concomitant]

REACTIONS (2)
  - Suicidal ideation [None]
  - Duplicate therapy error [None]

NARRATIVE: CASE EVENT DATE: 20230331
